FAERS Safety Report 18471989 (Version 2)
Quarter: 2025Q2

REPORT INFORMATION
  Report Type: Spontaneous
  Country: DE (occurrence: DE)
  Receive Date: 20201106
  Receipt Date: 20250428
  Transmission Date: 20250716
  Serious: Yes (Hospitalization, Other)
  Sender: ALKEM
  Company Number: DE-PFIZER INC-2020086409

PATIENT
  Age: 68 Year
  Sex: Female
  Weight: 58 kg

DRUGS (17)
  1. PREGABALIN [Suspect]
     Active Substance: PREGABALIN
     Indication: Herpes zoster
     Route: 065
  2. DICLOFENAC [Suspect]
     Active Substance: DICLOFENAC
     Indication: Product used for unknown indication
     Route: 065
  3. ERYTHROMYCIN [Suspect]
     Active Substance: ERYTHROMYCIN
     Indication: Product used for unknown indication
     Route: 065
  4. CELEBREX [Suspect]
     Active Substance: CELECOXIB
     Indication: Musculoskeletal stiffness
     Dosage: 200 MILLIGRAM, QD (EVERY 1 DAY)
     Route: 065
     Dates: start: 2005
  5. HYDROCORTISONE ACETATE [Suspect]
     Active Substance: HYDROCORTISONE ACETATE
     Indication: Product used for unknown indication
     Route: 065
  6. UNSPECIFIED INGREDIENT [Suspect]
     Active Substance: UNSPECIFIED INGREDIENT
     Indication: Product used for unknown indication
     Route: 065
  7. BACITRACIN\NEOMYCIN SULFATE [Suspect]
     Active Substance: BACITRACIN\NEOMYCIN SULFATE
     Indication: Product used for unknown indication
     Route: 065
  8. PENICILLIN [Suspect]
     Active Substance: PENICILLIN
     Indication: Product used for unknown indication
     Route: 065
  9. Bisoprolol ratiopharm [Concomitant]
     Indication: Product used for unknown indication
     Dosage: 2.5 MILLIGRAM, QD, (EVERY 1 DAY)
     Route: 065
  10. CALCIUM CARBONATE\CHOLECALCIFEROL [Concomitant]
     Active Substance: CALCIUM CARBONATE\CHOLECALCIFEROL
     Indication: Product used for unknown indication
     Route: 065
  11. MAGNESIUM [Concomitant]
     Active Substance: MAGNESIUM
     Indication: Product used for unknown indication
     Dosage: UNK, QD (EVERY 1 DAY)
     Route: 065
  12. LEVOTHYROXINE SODIUM\LIOTHYRONINE SODIUM [Concomitant]
     Active Substance: LEVOTHYROXINE SODIUM\LIOTHYRONINE SODIUM
     Indication: Product used for unknown indication
     Dosage: 74 MILLIGRAM, QD, (EVERY 1 DAY)
     Route: 065
  13. SILICON DIOXIDE [Concomitant]
     Active Substance: SILICON DIOXIDE
     Indication: Product used for unknown indication
     Dosage: UNK, QD (EVERY 1 DAY)
     Route: 065
  14. Tolperison-HCl Stda [Concomitant]
     Indication: Product used for unknown indication
     Dosage: 100 MILLIGRAM, QD, (EVERY 1 DAY)
     Route: 065
  15. Tramadol Librapharm [Concomitant]
     Indication: Product used for unknown indication
     Dosage: 400 MILLIGRAM, QD, (EVERY 1 DAY)
     Route: 065
  16. Vitamin C, Zink [Concomitant]
     Indication: Product used for unknown indication
     Dosage: UNK, QD (EVERY 1 DAY)
     Route: 065
  17. Xipamid 1 A Pharma [Concomitant]
     Indication: Product used for unknown indication
     Dosage: 40 MILLIGRAM, QD, (EVERY 1 DAY)
     Route: 065

REACTIONS (6)
  - Interstitial lung disease [Recovered/Resolved]
  - Toxicity to various agents [Not Recovered/Not Resolved]
  - Respiratory failure [Recovered/Resolved]
  - Drug intolerance [Unknown]
  - Oedema peripheral [Recovered/Resolved]
  - Bronchitis [Recovered/Resolved]

NARRATIVE: CASE EVENT DATE: 20190301
